FAERS Safety Report 5872419-3 (Version None)
Quarter: 2008Q3

REPORT INFORMATION
  Report Type: 
  Country: None (occurrence: None)
  Receive Date: 20080905
  Receipt Date: 20080825
  Transmission Date: 20090109
  Serious: Yes (Other)
  Sender: FDA-Public Use
  Company Number: PHHY2008NL19128

PATIENT
  Sex: Female

DRUGS (2)
  1. DICLOFENAC SODIUM [Suspect]
     Dosage: 75 MG, BID
     Route: 048
     Dates: start: 20080715
  2. BISOPROLOL FUMARATE [Concomitant]
     Dosage: 5 MG, QD
     Route: 048

REACTIONS (1)
  - SYNCOPE VASOVAGAL [None]
